FAERS Safety Report 10595397 (Version 2)
Quarter: 2015Q4

REPORT INFORMATION
  Report Type: Spontaneous
  Country: PT (occurrence: PT)
  Receive Date: 20141120
  Receipt Date: 20151001
  Transmission Date: 20160304
  Serious: Yes (Death, Other)
  Sender: FDA-Public Use
  Company Number: PT-CELGENE-PRT-2014112366

PATIENT

DRUGS (1)
  1. VIDAZA [Suspect]
     Active Substance: AZACITIDINE
     Indication: MYELODYSPLASTIC SYNDROME
     Route: 065

REACTIONS (7)
  - Death [Fatal]
  - Haemorrhage [Fatal]
  - Stem cell transplant [Fatal]
  - Septic shock [Fatal]
  - Disease progression [Fatal]
  - Vasculitis [Unknown]
  - Infection [Fatal]
